FAERS Safety Report 20373407 (Version 9)
Quarter: 2022Q4

REPORT INFORMATION
  Report Type: Report from Study
  Country: US (occurrence: US)
  Receive Date: 20220125
  Receipt Date: 20221228
  Transmission Date: 20230113
  Serious: No
  Sender: FDA-Public Use
  Company Number: US-NOVARTISTESTPH-NVSC2022US015595

PATIENT
  Sex: Female

DRUGS (1)
  1. COSENTYX [Suspect]
     Active Substance: SECUKINUMAB
     Indication: Psoriatic arthropathy
     Dosage: 150 MG, QMO (EVERY 4 WEEKS)
     Route: 058

REACTIONS (8)
  - Arthralgia [Recovering/Resolving]
  - Injection site bruising [Recovered/Resolved]
  - Injection site pain [Unknown]
  - Alopecia [Unknown]
  - Bacterial infection [Unknown]
  - Psoriasis [Unknown]
  - Drug ineffective [Unknown]
  - Condition aggravated [Recovered/Resolved]
